FAERS Safety Report 5212570-4 (Version None)
Quarter: 2007Q1

REPORT INFORMATION
  Report Type: 
  Country: None (occurrence: None)
  Receive Date: 20070118
  Receipt Date: 20061211
  Transmission Date: 20070707
  Serious: Yes (Hospitalization, Other)
  Sender: FDA-Public Use
  Company Number: US-PFIZER INC-2006153188

PATIENT
  Sex: Female
  Weight: 90.7 kg

DRUGS (2)
  1. CELEBREX [Suspect]
     Indication: OSTEOARTHRITIS
  2. CELEBREX [Suspect]
     Indication: RHEUMATOID ARTHRITIS

REACTIONS (7)
  - ANXIETY [None]
  - CARDIAC DISORDER [None]
  - CEREBROVASCULAR ACCIDENT [None]
  - DEPRESSION [None]
  - DYSARTHRIA [None]
  - DYSPHAGIA [None]
  - HEMIPARESIS [None]
